FAERS Safety Report 7418372-2 (Version None)
Quarter: 2011Q2

REPORT INFORMATION
  Report Type: 
  Country: None (occurrence: None)
  Receive Date: 20110415
  Receipt Date: 20110406
  Transmission Date: 20111010
  Serious: Yes (Hospitalization)
  Sender: FDA-Public Use
  Company Number: B0711185A

PATIENT
  Sex: Female

DRUGS (1)
  1. FORTUM [Suspect]
     Indication: OSTEOARTHRITIS
     Dosage: 2G THREE TIMES PER DAY
     Route: 042
     Dates: start: 20110110, end: 20110117

REACTIONS (5)
  - DISORIENTATION [None]
  - CHOLESTASIS [None]
  - ENCEPHALOPATHY [None]
  - DISTURBANCE IN ATTENTION [None]
  - TACHYPNOEA [None]
